FAERS Safety Report 5400464-0 (Version None)
Quarter: 2007Q3

REPORT INFORMATION
  Report Type: 
  Country: None (occurrence: None)
  Receive Date: 20070730
  Receipt Date: 20070719
  Transmission Date: 20080115
  Serious: Yes (Other)
  Sender: FDA-Public Use
  Company Number: US-MERCK-0706USA00339

PATIENT
  Age: 56 Year
  Sex: Male
  Weight: 72 kg

DRUGS (6)
  1. ZETIA [Suspect]
     Indication: BLOOD CHOLESTEROL
     Route: 048
     Dates: start: 20060731
  2. ZETIA [Suspect]
     Indication: LOW DENSITY LIPOPROTEIN INCREASED
     Route: 048
     Dates: start: 20060731
  3. CRESTOR [Concomitant]
     Route: 065
  4. SERZONE [Suspect]
     Route: 065
  5. ASPIRIN [Concomitant]
     Route: 065
  6. BUSPAR [Concomitant]
     Route: 065

REACTIONS (1)
  - GRAND MAL CONVULSION [None]
